FAERS Safety Report 13137547 (Version 1)
Quarter: 2017Q1

REPORT INFORMATION
  Report Type: Report from Study
  Country: US (occurrence: US)
  Receive Date: 20170123
  Receipt Date: 20170123
  Transmission Date: 20170428
  Serious: Yes (Other)
  Sender: FDA-Public Use
  Company Number: US-BIOGEN-2017BI00344605

PATIENT
  Age: 49 Year
  Sex: Female
  Weight: 94.43 kg

DRUGS (1)
  1. TECFIDERA [Suspect]
     Active Substance: DIMETHYL FUMARATE
     Indication: MULTIPLE SCLEROSIS
     Dosage: MAINTENANCE DOSE
     Route: 048
     Dates: start: 20141101

REACTIONS (5)
  - Gait disturbance [Not Recovered/Not Resolved]
  - Back pain [Not Recovered/Not Resolved]
  - Intracranial aneurysm [Unknown]
  - Pain in extremity [Not Recovered/Not Resolved]
  - Seizure [Unknown]

NARRATIVE: CASE EVENT DATE: 201612
